FAERS Safety Report 6089468-5 (Version None)
Quarter: 2009Q1

REPORT INFORMATION
  Report Type: 
  Country: None (occurrence: None)
  Receive Date: 20090219
  Receipt Date: 20090219
  Transmission Date: 20090719
  Serious: No
  Sender: FDA-Public Use
  Company Number: None

PATIENT
  Sex: Female

DRUGS (8)
  1. DILANTIN [Suspect]
     Dosage: 100MG CAPSULE 500MG QD ORAL
     Route: 048
     Dates: start: 20080922, end: 20090218
  2. COUMADIN [Concomitant]
  3. COUMADIN [Concomitant]
  4. KEPPRA [Concomitant]
  5. KLONOPIN [Concomitant]
  6. LOVENOX [Concomitant]
  7. PLAQUENIL [Concomitant]
  8. WARFARIN SODIUM [Concomitant]

REACTIONS (2)
  - RASH [None]
  - VISUAL IMPAIRMENT [None]
